FAERS Safety Report 6560300-6 (Version None)
Quarter: 2010Q1

REPORT INFORMATION
  Report Type: 
  Country: None (occurrence: None)
  Receive Date: 20100129
  Receipt Date: 20050119
  Transmission Date: 20100710
  Serious: No
  Sender: FDA-Public Use
  Company Number: US-ALLERGAN-200501527

PATIENT
  Sex: Female

DRUGS (2)
  1. BOTOX [Suspect]
     Indication: MUSCLE SPASMS
     Route: 030
  2. MYOBLOC [Suspect]
     Indication: MUSCLE SPASMS

REACTIONS (1)
  - INJECTION SITE MASS [None]
